FAERS Safety Report 20642175 (Version 2)
Quarter: 2022Q2

REPORT INFORMATION
  Report Type: Spontaneous
  Country: US (occurrence: US)
  Receive Date: 20220328
  Receipt Date: 20220412
  Transmission Date: 20220721
  Serious: Yes (Other)
  Sender: FDA-Public Use
  Company Number: US-009507513-2203USA006669

PATIENT
  Age: 44 Year
  Sex: Female

DRUGS (7)
  1. KEYTRUDA [Suspect]
     Active Substance: PEMBROLIZUMAB
     Dosage: 21 DAYS CYCLE
  2. CARBOPLATIN [Suspect]
     Active Substance: CARBOPLATIN
     Indication: Triple negative breast cancer
     Dosage: CYCLICAL
     Route: 048
  3. TAXOL [Suspect]
     Active Substance: PACLITAXEL
     Indication: Triple negative breast cancer
     Dosage: CYCLICAL
     Route: 048
  4. ADRIAMYCIN [Suspect]
     Active Substance: DOXORUBICIN HYDROCHLORIDE
     Indication: Triple negative breast cancer
     Dosage: EVERY 14 DAYS
     Dates: start: 20201023, end: 202102
  5. CYCLOPHOSPHAMIDE [Suspect]
     Active Substance: CYCLOPHOSPHAMIDE
     Indication: Triple negative breast cancer
     Dosage: EVERY 14 DAYS
     Dates: start: 20201023, end: 202102
  6. HERCEPTIN [Suspect]
     Active Substance: TRASTUZUMAB
     Indication: Triple negative breast cancer
     Dosage: UNK
     Dates: start: 20210709
  7. XELODA [Suspect]
     Active Substance: CAPECITABINE
     Indication: Triple negative breast cancer
     Dosage: UNK
     Dates: start: 20210820

REACTIONS (5)
  - Mastectomy [Unknown]
  - Radiotherapy [Unknown]
  - Cancer surgery [Unknown]
  - Adverse drug reaction [Unknown]
  - Product use in unapproved indication [Unknown]

NARRATIVE: CASE EVENT DATE: 20210324
